FAERS Safety Report 9871289 (Version 1)
Quarter: 2014Q1

REPORT INFORMATION
  Report Type: Spontaneous
  Country: JP (occurrence: JP)
  Receive Date: 20140205
  Receipt Date: 20140205
  Transmission Date: 20141002
  Serious: Yes (Other)
  Sender: FDA-Public Use
  Company Number: JP-GLAXOSMITHKLINE-B0962071A

PATIENT
  Age: 86 Year
  Sex: Female

DRUGS (1)
  1. VALTREX [Suspect]
     Indication: HERPES ZOSTER
     Dosage: 1000MG THREE TIMES PER DAY
     Route: 048
     Dates: start: 20131228

REACTIONS (4)
  - Altered state of consciousness [Unknown]
  - Hyponatraemia [Unknown]
  - Cognitive disorder [Unknown]
  - Disorientation [Unknown]
